FAERS Safety Report 8062012-9 (Version None)
Quarter: 2012Q1

REPORT INFORMATION
  Report Type: 
  Country: None (occurrence: None)
  Receive Date: 20120123
  Receipt Date: 20120117
  Transmission Date: 20120608
  Serious: Yes (Death)
  Sender: FDA-Public Use
  Company Number: JP-CELGENEUS-087-50794-12011899

PATIENT
  Age: 85 Year
  Sex: Female

DRUGS (1)
  1. VIDAZA [Suspect]
     Dosage: 100 MILLIGRAM
     Route: 041
     Dates: start: 20111219, end: 20111225

REACTIONS (3)
  - DEATH [None]
  - ABDOMINAL PAIN [None]
  - OLIGURIA [None]
